FAERS Safety Report 16190051 (Version 1)
Quarter: 2019Q2

REPORT INFORMATION
  Report Type: Spontaneous
  Country: SE (occurrence: SE)
  Receive Date: 20190412
  Receipt Date: 20190412
  Transmission Date: 20190711
  Serious: Yes (Hospitalization)
  Sender: FDA-Public Use
  Company Number: SE-PFIZER INC-2019152669

PATIENT
  Age: 41 Year
  Sex: Female
  Weight: 58 kg

DRUGS (8)
  1. OLUMIANT [Concomitant]
     Active Substance: BARICITINIB
     Dosage: UNK
     Dates: start: 2018
  2. OMEPRAZOLE. [Concomitant]
     Active Substance: OMEPRAZOLE
     Dosage: UNK
  3. HUMALOG [Concomitant]
     Active Substance: INSULIN LISPRO
     Dosage: UNK
  4. ORUDIS [Concomitant]
     Active Substance: KETOPROFEN
     Dosage: UNK
     Dates: start: 2010
  5. PROVERA [Suspect]
     Active Substance: MEDROXYPROGESTERONE ACETATE
     Indication: ENDOMETRIOSIS
     Dosage: UNK (2 TABLETS/DAY)
     Dates: start: 20180402
  6. TRESIBA [Concomitant]
     Active Substance: INSULIN DEGLUDEC
     Dosage: UNK
  7. LEVAXIN [Concomitant]
     Active Substance: LEVOTHYROXINE SODIUM
     Dosage: UNK
     Dates: start: 2010
  8. BETMIGA [Concomitant]
     Active Substance: MIRABEGRON
     Dosage: UNK
     Dates: start: 2018

REACTIONS (2)
  - Urethral pain [Recovering/Resolving]
  - Vulvovaginal dryness [Recovering/Resolving]

NARRATIVE: CASE EVENT DATE: 2018
